FAERS Safety Report 10720495 (Version 1)
Quarter: 2015Q1

REPORT INFORMATION
  Report Type: Spontaneous
  Country: JP (occurrence: JP)
  Receive Date: 20150119
  Receipt Date: 20150119
  Transmission Date: 20150721
  Serious: Yes (Other)
  Sender: FDA-Public Use
  Company Number: PHHY2015JP004545

PATIENT
  Sex: Male

DRUGS (1)
  1. VOLTAREN [Suspect]
     Active Substance: DICLOFENAC SODIUM
     Indication: POST-TRAUMATIC PAIN
     Dosage: 25 MG OR 50 MG, DAILY
     Route: 048

REACTIONS (3)
  - Haematemesis [Unknown]
  - Ulcer [Unknown]
  - Incorrect dose administered [Unknown]
